FAERS Safety Report 16679920 (Version 4)
Quarter: 2024Q2

REPORT INFORMATION
  Report Type: Spontaneous
  Country: US (occurrence: US)
  Receive Date: 20190807
  Receipt Date: 20240416
  Transmission Date: 20240716
  Serious: Yes (Other)
  Sender: FDA-Public Use
  Company Number: US-IMPAX LABORATORIES, LLC-2019-IPXL-01567

PATIENT
  Age: 81 Year
  Sex: Male

DRUGS (5)
  1. RYTARY [Suspect]
     Active Substance: CARBIDOPA\LEVODOPA
     Indication: Parkinson^s disease
     Dosage: 1 CAPSULE THREE TIMES A DAY, 2-3 YEARS AGO
     Route: 048
  2. RYTARY [Suspect]
     Active Substance: CARBIDOPA\LEVODOPA
     Dosage: 1 CAPSULES (61.25/245MG), 4 /DAY, 8AM, NOON, 5PM, AND AT NIGHT.
     Route: 048
  3. RYTARY [Suspect]
     Active Substance: CARBIDOPA\LEVODOPA
     Dosage: 2 CAPSULES (36.25-145 MG) T), 4 /DAY (8 AM, NOON, 5PM, AND 3AM)
     Route: 048
     Dates: start: 20231026
  4. RYTARY [Suspect]
     Active Substance: CARBIDOPA\LEVODOPA
     Dosage: 36.25-145MG CAPSULES TAKE 2 CAPSULES AT 8 AM, TAKE 2 CAPSULES AT 11:30 AM, TAKE 3 CAPSULES AT 5 PM A
     Route: 048
  5. RYTARY [Suspect]
     Active Substance: CARBIDOPA\LEVODOPA
     Dosage: 48.75-195 MG TAKE 2 CAPSULES BY MOUTH 4 TIMES A DAY AT 8 AM, 12PM, 5PM AND 9PM
     Route: 048
     Dates: start: 20240402

REACTIONS (3)
  - Rocky mountain spotted fever [Not Recovered/Not Resolved]
  - Upper respiratory tract infection [Unknown]
  - Freezing phenomenon [Unknown]

NARRATIVE: CASE EVENT DATE: 20240201
